FAERS Safety Report 10898124 (Version 1)
Quarter: 2015Q1

REPORT INFORMATION
  Report Type: Spontaneous
  Country: GB (occurrence: GB)
  Receive Date: 20150309
  Receipt Date: 20150309
  Transmission Date: 20150721
  Serious: Yes (Hospitalization, Other)
  Sender: FDA-Public Use
  Company Number: GB-TEVA-545280ACC

PATIENT
  Age: 39 Year
  Sex: Female

DRUGS (2)
  1. CHAMPIX [Interacting]
     Active Substance: VARENICLINE TARTRATE
     Route: 048
     Dates: start: 20150119, end: 20150130
  2. WARFARIN [Suspect]
     Active Substance: WARFARIN

REACTIONS (4)
  - Peripheral swelling [Recovering/Resolving]
  - Back pain [Recovering/Resolving]
  - Thrombosis [Recovering/Resolving]
  - Drug interaction [Unknown]

NARRATIVE: CASE EVENT DATE: 20150120
